FAERS Safety Report 9420916 (Version 1)
Quarter: 2013Q3

REPORT INFORMATION
  Report Type: Spontaneous
  Country: US (occurrence: US)
  Receive Date: 20130725
  Receipt Date: 20130725
  Transmission Date: 20140515
  Serious: No
  Sender: FDA-Public Use
  Company Number: US-ABBOTT-13P-163-1112880-00

PATIENT
  Age: 62 Year
  Sex: Male
  Weight: 94.43 kg

DRUGS (9)
  1. SYNTHROID [Suspect]
     Indication: HYPOTHYROIDISM
     Dates: start: 201204, end: 201205
  2. SYNTHROID [Suspect]
     Indication: HYPOTHYROIDISM
     Dates: start: 201205, end: 201206
  3. SYNTHROID [Suspect]
     Indication: HYPOTHYROIDISM
     Dates: start: 201206, end: 201207
  4. SYNTHROID [Suspect]
     Indication: HYPOTHYROIDISM
     Dates: start: 201207, end: 201208
  5. SYNTHROID [Suspect]
     Dates: start: 201210, end: 201301
  6. SYNTHROID [Suspect]
     Indication: HYPOTHYROIDISM
     Dates: start: 201301, end: 201304
  7. SYNTHROID [Suspect]
     Dosage: ALTERNATE EVERY OTHER DAY WITH 150 MICROGRAM
     Dates: start: 201304, end: 201304
  8. SYNTHROID [Suspect]
     Dates: start: 201304
  9. SYNTHROID [Suspect]
     Dosage: ALTERNATE EVERY OTHER DAY WITH 137 MICROGRAMS
     Dates: start: 201304, end: 201304

REACTIONS (4)
  - Disturbance in attention [Not Recovered/Not Resolved]
  - Memory impairment [Not Recovered/Not Resolved]
  - Weight increased [Not Recovered/Not Resolved]
  - Anxiety [Not Recovered/Not Resolved]
